FAERS Safety Report 8522825-3 (Version None)
Quarter: 2012Q3

REPORT INFORMATION
  Report Type: 
  Country: None (occurrence: None)
  Receive Date: 20120720
  Receipt Date: 20120710
  Transmission Date: 20120928
  Serious: Yes (Other)
  Sender: FDA-Public Use
  Company Number: AR-AMGEN-ARGSP2012026149

PATIENT
  Age: 58 Year
  Sex: Female

DRUGS (6)
  1. IBUPROFEN [Concomitant]
     Dosage: UNK
  2. METHOTREXATE [Concomitant]
     Dosage: UNK
  3. HYDROXYCHLOROQUINE SULFATE [Concomitant]
     Dosage: UNK
  4. CARVEDILOL [Concomitant]
     Dosage: UNK
  5. NAPROXEN [Concomitant]
     Dosage: UNK
  6. ENBREL [Suspect]
     Indication: RHEUMATOID ARTHRITIS
     Dosage: 50 MG, WEEKLY
     Route: 058
     Dates: start: 20081028, end: 20120301

REACTIONS (4)
  - DRUG INEFFECTIVE [None]
  - EAR DISORDER [None]
  - HYPERSENSITIVITY [None]
  - ARTHRALGIA [None]
